FAERS Safety Report 4892934-9 (Version None)
Quarter: 2005Q4

REPORT INFORMATION
  Report Type: 
  Country: None (occurrence: None)
  Receive Date: 20051220
  Receipt Date: 20050913
  Transmission Date: 20060501
  Serious: Yes (Other)
  Sender: FDA-Public Use
  Company Number: 414354

PATIENT
  Age: 78 Year
  Sex: Female

DRUGS (4)
  1. BONIVA [Suspect]
     Dates: start: 20050701
  2. NEXIUM (OMEPRAZOLE) [Concomitant]
  3. ZANTAC [Concomitant]
  4. PRILOSEC [Concomitant]

REACTIONS (6)
  - ABDOMINAL DISTENSION [None]
  - ARTHRALGIA [None]
  - BACK PAIN [None]
  - GASTROOESOPHAGEAL REFLUX DISEASE [None]
  - PAIN IN EXTREMITY [None]
  - STOMACH DISCOMFORT [None]
